FAERS Safety Report 20520284 (Version 1)
Quarter: 2022Q1

REPORT INFORMATION
  Report Type: Report from Study
  Country: US (occurrence: US)
  Receive Date: 20220225
  Receipt Date: 20220225
  Transmission Date: 20220423
  Serious: Yes (Other)
  Sender: FDA-Public Use
  Company Number: US-MYLANLABS-2022M1012752

PATIENT
  Age: 36 Year

DRUGS (1)
  1. AMNESTEEM [Suspect]
     Active Substance: ISOTRETINOIN
     Indication: Product used for unknown indication
     Dosage: UNK
     Dates: start: 20220210, end: 20220211

REACTIONS (15)
  - Hypertension [Unknown]
  - Poor quality sleep [Unknown]
  - Fatigue [Unknown]
  - Migraine [Unknown]
  - Tinnitus [Unknown]
  - Decreased appetite [Unknown]
  - Chills [Unknown]
  - Pyrexia [Unknown]
  - Eye pain [Unknown]
  - Heart rate increased [Unknown]
  - Feeling abnormal [Unknown]
  - Back pain [Unknown]
  - Photophobia [Unknown]
  - Nausea [Unknown]
  - Headache [Unknown]

NARRATIVE: CASE EVENT DATE: 20220211
